FAERS Safety Report 15842072 (Version 1)
Quarter: 2019Q1

REPORT INFORMATION
  Report Type: Spontaneous
  Country: US (occurrence: US)
  Receive Date: 20190117
  Receipt Date: 20190117
  Transmission Date: 20190417
  Serious: Yes (Other)
  Sender: FDA-Public Use
  Company Number: None

PATIENT
  Age: 30 Year
  Sex: Female

DRUGS (6)
  1. HUMIRA [Suspect]
     Active Substance: ADALIMUMAB
     Indication: RHEUMATOID ARTHRITIS
     Dosage: ?          OTHER FREQUENCY:EVERY 2 WEEKS;?
     Route: 058
     Dates: start: 20180825
  2. PREDNISONE. [Concomitant]
     Active Substance: PREDNISONE
  3. MAXIDEX [Concomitant]
     Active Substance: DEXAMETHASONE
  4. CYCLOPENTOLATE. [Concomitant]
     Active Substance: CYCLOPENTOLATE
  5. IBUPROFEN. [Concomitant]
     Active Substance: IBUPROFEN
  6. ICY HOT [Concomitant]
     Active Substance: MENTHOL\METHYL SALICYLATE

REACTIONS (3)
  - Maternal drugs affecting foetus [None]
  - Jaundice neonatal [None]
  - Exposure during pregnancy [None]

NARRATIVE: CASE EVENT DATE: 20190117
